FAERS Safety Report 8214634-X (Version None)
Quarter: 2012Q1

REPORT INFORMATION
  Report Type: 
  Country: None (occurrence: None)
  Receive Date: 20120316
  Receipt Date: 20120302
  Transmission Date: 20120608
  Serious: Yes (Hospitalization, Congenital Anomaly)
  Sender: FDA-Public Use
  Company Number: DE-MYLANLABS-2012S1004630

PATIENT
  Age: 0 Year
  Sex: Female
  Weight: 3.29 kg

DRUGS (3)
  1. DEKRISTOL [Concomitant]
     Dosage: ONCE EVERY 14 DAYS.
     Route: 064
     Dates: start: 20100803, end: 20110111
  2. LEVOTHYROXINE SODIUM [Concomitant]
     Dosage: 100 [UG/D ]/ 50UG/D UNTIL MARCH 2011, FROM MARCH 2011 100UG/D
     Route: 064
     Dates: start: 20100803, end: 20110503
  3. METFORMIN HCL [Suspect]
     Dosage: 2000 [MG/D (2X1000) ]
     Route: 064
     Dates: start: 20100803, end: 20110111

REACTIONS (2)
  - MATERNAL EXPOSURE DURING PREGNANCY [None]
  - OVARIAN CYST [None]
